FAERS Safety Report 6066468-2 (Version None)
Quarter: 2009Q1

REPORT INFORMATION
  Report Type: 
  Country: None (occurrence: None)
  Receive Date: 20090205
  Receipt Date: 20090127
  Transmission Date: 20090719
  Serious: Yes (Hospitalization)
  Sender: FDA-Public Use
  Company Number: US-BIOGENIDEC-2009BI000377

PATIENT
  Age: 36 Year
  Sex: Female

DRUGS (1)
  1. TYSABRI [Suspect]
     Indication: MULTIPLE SCLEROSIS
     Route: 042
     Dates: start: 20071219

REACTIONS (5)
  - INFLUENZA [None]
  - PYREXIA [None]
  - STREPTOCOCCAL INFECTION [None]
  - ULCER HAEMORRHAGE [None]
  - VIRAL INFECTION [None]
